FAERS Safety Report 20589241 (Version 4)
Quarter: 2022Q2

REPORT INFORMATION
  Report Type: Spontaneous
  Country: DE (occurrence: DE)
  Receive Date: 20220314
  Receipt Date: 20220405
  Transmission Date: 20220721
  Serious: Yes (Other)
  Sender: FDA-Public Use
  Company Number: DE-SA-2022SA075944

PATIENT
  Sex: Female

DRUGS (1)
  1. KEVZARA [Suspect]
     Active Substance: SARILUMAB
     Dosage: UNK
     Dates: start: 2021

REACTIONS (7)
  - Rheumatoid arthritis [Unknown]
  - Swelling [Unknown]
  - Movement disorder [Unknown]
  - Pain [Unknown]
  - Chills [Unknown]
  - Contusion [Unknown]
  - Drug ineffective [Unknown]

NARRATIVE: CASE EVENT DATE: 20220101
